FAERS Safety Report 9751106 (Version 2)
Quarter: 2013Q4

REPORT INFORMATION
  Report Type: Spontaneous
  Country: US (occurrence: US)
  Receive Date: 20131212
  Receipt Date: 20131213
  Transmission Date: 20140711
  Serious: No
  Sender: FDA-Public Use
  Company Number: US-TEVA-401298USA

PATIENT
  Age: 24 Year
  Sex: Female
  Weight: 45.4 kg

DRUGS (4)
  1. PARAGARD 380A [Suspect]
     Indication: CONTRACEPTION
     Route: 015
     Dates: start: 20130321, end: 20130425
  2. ADDERALL [Concomitant]
     Indication: ATTENTION DEFICIT/HYPERACTIVITY DISORDER
  3. SPIRONOLACTONE [Concomitant]
  4. MULTIVITAMIN [Concomitant]

REACTIONS (3)
  - Dysmenorrhoea [Recovered/Resolved]
  - Device expulsion [Recovered/Resolved]
  - Metrorrhagia [Recovered/Resolved]
